FAERS Safety Report 7650920-X (Version None)
Quarter: 2011Q3

REPORT INFORMATION
  Report Type: 
  Country: None (occurrence: None)
  Receive Date: 20110727
  Receipt Date: 20110711
  Transmission Date: 20111222
  Serious: Yes (Disabling)
  Sender: FDA-Public Use
  Company Number: 2011MA008595

PATIENT
  Age: 59 Year
  Sex: Male

DRUGS (2)
  1. PHENYTOIN [Suspect]
     Indication: EPILEPSY
     Dosage: 100 MG; QD
  2. VALPROATE SODIUM [Suspect]
     Indication: EPILEPSY
     Dosage: 500 MG; QD

REACTIONS (7)
  - MALE ORGASMIC DISORDER [None]
  - EJACULATION DISORDER [None]
  - BLOOD LUTEINISING HORMONE INCREASED [None]
  - BLOOD FOLLICLE STIMULATING HORMONE INCREASED [None]
  - RETROGRADE EJACULATION [None]
  - SEX HORMONE BINDING GLOBULIN INCREASED [None]
  - BLOOD TESTOSTERONE INCREASED [None]
